FAERS Safety Report 5083477-0 (Version None)
Quarter: 2006Q3

REPORT INFORMATION
  Report Type: 
  Country: None (occurrence: None)
  Receive Date: 20060818
  Receipt Date: 20060809
  Transmission Date: 20061208
  Serious: Yes (Other)
  Sender: FDA-Public Use
  Company Number: BR-JNJFOC-20060803171

PATIENT
  Age: 43 Year
  Sex: Female
  Weight: 73 kg

DRUGS (3)
  1. TYLENOL (CAPLET) [Suspect]
  2. TYLENOL (CAPLET) [Suspect]
     Indication: HEADACHE
  3. TYLENOL [Suspect]
     Indication: SINUS HEADACHE
     Route: 048

REACTIONS (5)
  - CHEST PAIN [None]
  - HYPERHIDROSIS [None]
  - INSOMNIA [None]
  - PALPITATIONS [None]
  - POOR QUALITY DRUG ADMINISTERED [None]
